FAERS Safety Report 23383107 (Version 2)
Quarter: 2024Q1

REPORT INFORMATION
  Report Type: Spontaneous
  Country: CN (occurrence: CN)
  Receive Date: 20240109
  Receipt Date: 20240116
  Transmission Date: 20240409
  Serious: Yes (Hospitalization)
  Sender: FDA-Public Use
  Company Number: CN-002147023-NVSC2024CN003797

PATIENT
  Age: 6 Month
  Sex: Male

DRUGS (2)
  1. TRILEPTAL [Suspect]
     Active Substance: OXCARBAZEPINE
     Indication: Epilepsy
     Dosage: 0.5 ML, Q12H
     Route: 048
     Dates: start: 20230812, end: 20230819
  2. TRILEPTAL [Suspect]
     Active Substance: OXCARBAZEPINE
     Dosage: 1.5 ML, Q12H
     Route: 048
     Dates: start: 20230819, end: 20230921

REACTIONS (4)
  - Rash [Recovering/Resolving]
  - Scab [Recovering/Resolving]
  - Blister [Recovering/Resolving]
  - Drug eruption [Unknown]

NARRATIVE: CASE EVENT DATE: 20230821
